FAERS Safety Report 8431598-4 (Version None)
Quarter: 2012Q2

REPORT INFORMATION
  Report Type: 
  Country: None (occurrence: None)
  Receive Date: 20120613
  Receipt Date: 20120522
  Transmission Date: 20120825
  Serious: Yes (Other)
  Sender: FDA-Public Use
  Company Number: JP-JNJFOC-20120516280

PATIENT
  Age: 38 Year
  Sex: Male

DRUGS (3)
  1. REMICADE [Suspect]
     Dosage: 5TH DOSE OF INFLIXIMAB
     Route: 042
  2. METHOTREXATE [Concomitant]
     Route: 065
  3. REMICADE [Suspect]
     Indication: BEHCET'S SYNDROME
     Route: 042

REACTIONS (4)
  - ERYTHEMA [None]
  - RASH PUSTULAR [None]
  - PARADOXICAL DRUG REACTION [None]
  - SKIN EXFOLIATION [None]
